FAERS Safety Report 5627750-3 (Version None)
Quarter: 2008Q1

REPORT INFORMATION
  Report Type: 
  Country: None (occurrence: None)
  Receive Date: 20080215
  Receipt Date: 20080211
  Transmission Date: 20080703
  Serious: Yes (Other)
  Sender: FDA-Public Use
  Company Number: A0705582A

PATIENT
  Age: 40 Year
  Sex: Male
  Weight: 68.2 kg

DRUGS (4)
  1. EPZICOM [Suspect]
     Indication: HIV INFECTION
     Dosage: 1TAB PER DAY
     Route: 048
     Dates: start: 20071217, end: 20080101
  2. VIRAMUNE [Suspect]
     Indication: HIV INFECTION
     Dosage: 200MG PER DAY
     Route: 048
     Dates: start: 20071217, end: 20071228
  3. AMBIEN [Concomitant]
  4. BLOOD PRESSURE MEDICATION [Concomitant]

REACTIONS (4)
  - ALANINE AMINOTRANSFERASE INCREASED [None]
  - ASPARTATE AMINOTRANSFERASE INCREASED [None]
  - CHILLS [None]
  - RASH MACULO-PAPULAR [None]
